FAERS Safety Report 25347889 (Version 2)
Quarter: 2025Q4

REPORT INFORMATION
  Report Type: Spontaneous
  Country: US (occurrence: US)
  Receive Date: 20250522
  Receipt Date: 20251001
  Transmission Date: 20260117
  Serious: Yes (Other)
  Sender: BRISTOL-MYERS SQUIBB COMPANY
  Company Number: US-BRISTOL-MYERS SQUIBB COMPANY-2025-069580

PATIENT
  Age: 89 Year
  Sex: Female

DRUGS (3)
  1. POMALYST [Suspect]
     Active Substance: POMALIDOMIDE
     Indication: Plasma cell myeloma
     Dosage: FREQ: QD
  2. POMALYST [Suspect]
     Active Substance: POMALIDOMIDE
     Dosage: 1MG DAILY FOR 21 DAYS THEN 28 DAYS OFF
  3. POMALYST [Suspect]
     Active Substance: POMALIDOMIDE
     Dosage: QD
     Dates: start: 20240402, end: 20250528

REACTIONS (3)
  - Neuropathy peripheral [Unknown]
  - Fatigue [Unknown]
  - Cytopenia [Unknown]

NARRATIVE: CASE EVENT DATE: 20250512
